FAERS Safety Report 21233307 (Version 2)
Quarter: 2022Q3

REPORT INFORMATION
  Report Type: Report from Study
  Country: US (occurrence: US)
  Receive Date: 20220819
  Receipt Date: 20220901
  Transmission Date: 20221027
  Serious: No
  Sender: FDA-Public Use
  Company Number: US-TAKEDA-2022TUS057074

PATIENT
  Sex: Female
  Weight: 68 kg

DRUGS (4)
  1. MESALAMINE [Suspect]
     Active Substance: MESALAMINE
     Indication: Colitis ulcerative
     Dosage: UNK
     Route: 065
     Dates: start: 202206
  2. MESALAMINE [Suspect]
     Active Substance: MESALAMINE
     Dosage: 4 DOSAGE FORM, QD
     Route: 048
  3. MESALAMINE [Suspect]
     Active Substance: MESALAMINE
     Indication: Colitis ulcerative
     Dosage: UNK
     Route: 065
  4. BALSALAZIDE [Concomitant]
     Active Substance: BALSALAZIDE
     Indication: Colitis ulcerative

REACTIONS (7)
  - Drug ineffective [Unknown]
  - Condition aggravated [Not Recovered/Not Resolved]
  - Mucosal haemorrhage [Unknown]
  - Sleep disorder [Unknown]
  - Feeling abnormal [Unknown]
  - Insurance issue [Unknown]
  - Therapy interrupted [Not Recovered/Not Resolved]
